FAERS Safety Report 9442456 (Version 1)
Quarter: 2013Q3

REPORT INFORMATION
  Report Type: Spontaneous
  Country: US (occurrence: None)
  Receive Date: 20130805
  Receipt Date: 20130805
  Transmission Date: 20140515
  Serious: No
  Sender: FDA-Public Use
  Company Number: None

PATIENT
  Sex: Female
  Weight: 85.28 kg

DRUGS (2)
  1. LEVOTHYROXINE SODIUM [Suspect]
     Indication: SECONDARY HYPOTHYROIDISM
     Dosage: 175 MCG QD P.O.
     Route: 048
     Dates: start: 200909
  2. LEVOTHYROXINE SODIUM [Suspect]
     Dosage: 175 MCG QD P.O.
     Route: 048
     Dates: start: 200909

REACTIONS (3)
  - Blood thyroid stimulating hormone increased [None]
  - Product substitution issue [None]
  - Therapeutic response unexpected with drug substitution [None]
